FAERS Safety Report 24992955 (Version 1)
Quarter: 2025Q1

REPORT INFORMATION
  Report Type: Other
  Country: CA (occurrence: CA)
  Receive Date: 20250221
  Receipt Date: 20250221
  Transmission Date: 20250409
  Serious: Yes (Other)
  Sender: LUPIN
  Company Number: CA-LUPIN PHARMACEUTICALS INC.-2025-01722

PATIENT
  Age: 41 Year
  Sex: Female

DRUGS (150)
  1. PROPRANOLOL [Suspect]
     Active Substance: PROPRANOLOL HYDROCHLORIDE
     Indication: Migraine
     Route: 065
  2. PROPRANOLOL [Suspect]
     Active Substance: PROPRANOLOL HYDROCHLORIDE
     Route: 065
  3. PROPRANOLOL [Suspect]
     Active Substance: PROPRANOLOL HYDROCHLORIDE
     Route: 065
  4. AZITHROMYCIN [Suspect]
     Active Substance: AZITHROMYCIN
     Indication: Migraine
     Route: 065
  5. AZITHROMYCIN [Suspect]
     Active Substance: AZITHROMYCIN
     Route: 065
  6. ACETAMINOPHEN [Suspect]
     Active Substance: ACETAMINOPHEN
     Indication: Product used for unknown indication
     Route: 065
  7. ACETAMINOPHEN [Suspect]
     Active Substance: ACETAMINOPHEN
     Route: 065
  8. AMOXICILLIN [Suspect]
     Active Substance: AMOXICILLIN
     Indication: Product used for unknown indication
     Route: 065
  9. AMOXICILLIN [Suspect]
     Active Substance: AMOXICILLIN
     Route: 065
  10. AMOXICILLIN [Suspect]
     Active Substance: AMOXICILLIN
     Route: 065
  11. BOTULINUM TOXIN TYPE A [Suspect]
     Active Substance: BOTULINUM TOXIN TYPE A
     Indication: Product used for unknown indication
     Route: 065
  12. BOTULINUM TOXIN TYPE A [Suspect]
     Active Substance: BOTULINUM TOXIN TYPE A
     Route: 065
  13. BOTULINUM TOXIN TYPE A [Suspect]
     Active Substance: BOTULINUM TOXIN TYPE A
     Route: 065
  14. BOTULINUM TOXIN TYPE A [Suspect]
     Active Substance: BOTULINUM TOXIN TYPE A
     Route: 065
  15. BOTULINUM TOXIN TYPE A [Suspect]
     Active Substance: BOTULINUM TOXIN TYPE A
     Route: 065
  16. BOTULINUM TOXIN TYPE A [Suspect]
     Active Substance: BOTULINUM TOXIN TYPE A
     Route: 065
  17. CLOTRIMAZOLE\FLUCONAZOLE [Suspect]
     Active Substance: CLOTRIMAZOLE\FLUCONAZOLE
     Indication: Product used for unknown indication
     Route: 065
  18. CIPRO [Suspect]
     Active Substance: CIPROFLOXACIN HYDROCHLORIDE
     Indication: Migraine
     Route: 065
  19. CIPRO [Suspect]
     Active Substance: CIPROFLOXACIN HYDROCHLORIDE
     Dosage: 1 DOSAGE FORM, QD
     Route: 065
  20. CIPRO [Suspect]
     Active Substance: CIPROFLOXACIN HYDROCHLORIDE
     Route: 065
  21. CIPRO [Suspect]
     Active Substance: CIPROFLOXACIN HYDROCHLORIDE
     Route: 065
  22. CODEINE [Suspect]
     Active Substance: CODEINE
     Indication: Migraine
     Route: 065
  23. CODEINE [Suspect]
     Active Substance: CODEINE
     Route: 065
  24. CLARITHROMYCIN [Suspect]
     Active Substance: CLARITHROMYCIN
     Indication: Product used for unknown indication
     Route: 065
  25. CLARITHROMYCIN [Suspect]
     Active Substance: CLARITHROMYCIN
     Route: 065
  26. DEXAMETHASONE [Suspect]
     Active Substance: DEXAMETHASONE
     Indication: Migraine
     Route: 065
  27. DEXAMETHASONE [Suspect]
     Active Substance: DEXAMETHASONE
     Route: 065
  28. DULOXETINE HYDROCHLORIDE [Suspect]
     Active Substance: DULOXETINE HYDROCHLORIDE
     Indication: Migraine
     Route: 065
  29. DULOXETINE HYDROCHLORIDE [Suspect]
     Active Substance: DULOXETINE HYDROCHLORIDE
     Route: 065
  30. HYDROMORPHONE [Suspect]
     Active Substance: HYDROMORPHONE
     Indication: Migraine
     Route: 065
  31. HYDROMORPHONE [Suspect]
     Active Substance: HYDROMORPHONE
     Route: 065
  32. HYDROMORPHONE [Suspect]
     Active Substance: HYDROMORPHONE
     Route: 065
  33. HYDROMORPHONE [Suspect]
     Active Substance: HYDROMORPHONE
     Route: 065
  34. HYDROMORPHONE [Suspect]
     Active Substance: HYDROMORPHONE
     Route: 065
  35. HYDROMORPHONE [Suspect]
     Active Substance: HYDROMORPHONE
     Route: 065
  36. HYDROMORPHONE [Suspect]
     Active Substance: HYDROMORPHONE
     Route: 065
  37. HYDROMORPHONE [Suspect]
     Active Substance: HYDROMORPHONE
     Route: 065
  38. HYDROMORPHONE [Suspect]
     Active Substance: HYDROMORPHONE
     Route: 065
  39. HYDROMORPHONE [Suspect]
     Active Substance: HYDROMORPHONE
     Route: 065
  40. HYDROMORPHONE [Suspect]
     Active Substance: HYDROMORPHONE
     Route: 065
  41. INDOMETHACIN [Suspect]
     Active Substance: INDOMETHACIN
     Indication: Migraine
     Route: 054
  42. INDOMETHACIN [Suspect]
     Active Substance: INDOMETHACIN
     Route: 054
  43. INDOMETHACIN [Suspect]
     Active Substance: INDOMETHACIN
     Route: 065
  44. INDOMETHACIN [Suspect]
     Active Substance: INDOMETHACIN
     Route: 054
  45. INDOMETHACIN [Suspect]
     Active Substance: INDOMETHACIN
     Route: 054
  46. INDOMETHACIN [Suspect]
     Active Substance: INDOMETHACIN
     Route: 054
  47. INDOMETHACIN [Suspect]
     Active Substance: INDOMETHACIN
     Route: 054
  48. INDOMETHACIN [Suspect]
     Active Substance: INDOMETHACIN
     Route: 054
  49. INDOMETHACIN [Suspect]
     Active Substance: INDOMETHACIN
     Route: 054
  50. INDOMETHACIN [Suspect]
     Active Substance: INDOMETHACIN
     Route: 054
  51. INDOMETHACIN [Suspect]
     Active Substance: INDOMETHACIN
     Route: 054
  52. INDOMETHACIN [Suspect]
     Active Substance: INDOMETHACIN
     Route: 054
  53. INDOMETHACIN [Suspect]
     Active Substance: INDOMETHACIN
     Route: 054
  54. INDOMETHACIN [Suspect]
     Active Substance: INDOMETHACIN
     Route: 054
  55. INDOMETHACIN [Suspect]
     Active Substance: INDOMETHACIN
     Route: 054
  56. INDOMETHACIN [Suspect]
     Active Substance: INDOMETHACIN
     Route: 054
  57. INDOMETHACIN [Suspect]
     Active Substance: INDOMETHACIN
     Route: 054
  58. INDOMETHACIN [Suspect]
     Active Substance: INDOMETHACIN
     Route: 054
  59. INDOMETHACIN [Suspect]
     Active Substance: INDOMETHACIN
     Route: 054
  60. INDOMETHACIN [Suspect]
     Active Substance: INDOMETHACIN
     Route: 054
  61. INDOMETHACIN [Suspect]
     Active Substance: INDOMETHACIN
     Route: 054
  62. INDOMETHACIN [Suspect]
     Active Substance: INDOMETHACIN
     Route: 054
  63. INDOMETHACIN [Suspect]
     Active Substance: INDOMETHACIN
     Route: 054
  64. INDOMETHACIN [Suspect]
     Active Substance: INDOMETHACIN
     Route: 054
  65. INDOMETHACIN [Suspect]
     Active Substance: INDOMETHACIN
     Route: 054
  66. INDOMETHACIN [Suspect]
     Active Substance: INDOMETHACIN
     Route: 054
  67. LANSOPRAZOLE [Suspect]
     Active Substance: LANSOPRAZOLE
     Indication: Migraine
     Route: 065
  68. MAXALT [Suspect]
     Active Substance: RIZATRIPTAN BENZOATE
     Indication: Migraine
     Route: 065
  69. MAXALT [Suspect]
     Active Substance: RIZATRIPTAN BENZOATE
     Route: 065
  70. MAXALT [Suspect]
     Active Substance: RIZATRIPTAN BENZOATE
     Route: 065
  71. METOCLOPRAMIDE [Suspect]
     Active Substance: METOCLOPRAMIDE
     Indication: Migraine
     Route: 065
  72. MOMETASONE FUROATE [Suspect]
     Active Substance: MOMETASONE FUROATE
     Indication: Product used for unknown indication
     Route: 065
  73. MOMETASONE FUROATE [Suspect]
     Active Substance: MOMETASONE FUROATE
     Route: 065
  74. MOMETASONE FUROATE [Suspect]
     Active Substance: MOMETASONE FUROATE
     Route: 065
  75. MOMETASONE FUROATE [Suspect]
     Active Substance: MOMETASONE FUROATE
     Route: 065
  76. MOMETASONE FUROATE [Suspect]
     Active Substance: MOMETASONE FUROATE
     Route: 065
  77. PREDNISONE [Suspect]
     Active Substance: PREDNISONE
     Indication: Product used for unknown indication
     Dosage: 2 DOSAGE FORM, QD
     Route: 065
  78. PREDNISONE [Suspect]
     Active Substance: PREDNISONE
     Route: 065
  79. RABEPRAZOLE [Suspect]
     Active Substance: RABEPRAZOLE
     Indication: Migraine
     Route: 065
  80. RABEPRAZOLE [Suspect]
     Active Substance: RABEPRAZOLE
     Route: 065
  81. RABEPRAZOLE [Suspect]
     Active Substance: RABEPRAZOLE
     Route: 065
  82. RABEPRAZOLE [Suspect]
     Active Substance: RABEPRAZOLE
     Route: 065
  83. RABEPRAZOLE [Suspect]
     Active Substance: RABEPRAZOLE
     Route: 065
  84. RABEPRAZOLE [Suspect]
     Active Substance: RABEPRAZOLE
     Route: 065
  85. RABEPRAZOLE [Suspect]
     Active Substance: RABEPRAZOLE
     Route: 065
  86. RABEPRAZOLE [Suspect]
     Active Substance: RABEPRAZOLE
     Route: 065
  87. RABEPRAZOLE [Suspect]
     Active Substance: RABEPRAZOLE
     Route: 065
  88. RABEPRAZOLE [Suspect]
     Active Substance: RABEPRAZOLE
     Route: 065
  89. RABEPRAZOLE [Suspect]
     Active Substance: RABEPRAZOLE
     Route: 065
  90. RABEPRAZOLE [Suspect]
     Active Substance: RABEPRAZOLE
     Route: 065
  91. RABEPRAZOLE [Suspect]
     Active Substance: RABEPRAZOLE
     Route: 065
  92. RABEPRAZOLE [Suspect]
     Active Substance: RABEPRAZOLE
     Route: 065
  93. RABEPRAZOLE [Suspect]
     Active Substance: RABEPRAZOLE
     Route: 065
  94. RABEPRAZOLE [Suspect]
     Active Substance: RABEPRAZOLE
     Route: 065
  95. RABEPRAZOLE [Suspect]
     Active Substance: RABEPRAZOLE
     Route: 065
  96. RABEPRAZOLE [Suspect]
     Active Substance: RABEPRAZOLE
     Route: 065
  97. RABEPRAZOLE [Suspect]
     Active Substance: RABEPRAZOLE
     Route: 065
  98. ALBUTEROL [Suspect]
     Active Substance: ALBUTEROL
     Indication: Product used for unknown indication
     Dosage: UNK, QD
     Route: 065
  99. SCOPOLAMINE HYDROBROMIDE [Suspect]
     Active Substance: SCOPOLAMINE HYDROBROMIDE
     Indication: Migraine
     Route: 065
  100. SERTRALINE [Suspect]
     Active Substance: SERTRALINE HYDROCHLORIDE
     Indication: Migraine
     Route: 065
  101. SUMATRIPTAN [Suspect]
     Active Substance: SUMATRIPTAN
     Indication: Migraine
     Route: 065
  102. SUMATRIPTAN [Suspect]
     Active Substance: SUMATRIPTAN
     Route: 065
  103. SUMATRIPTAN [Suspect]
     Active Substance: SUMATRIPTAN
     Route: 065
  104. TOPIRAMATE [Suspect]
     Active Substance: TOPIRAMATE
     Indication: Migraine
     Route: 065
  105. ZOPICLONE [Suspect]
     Active Substance: ZOPICLONE
     Indication: Migraine
     Route: 065
  106. ZOPICLONE [Suspect]
     Active Substance: ZOPICLONE
     Route: 065
  107. ZOPICLONE [Suspect]
     Active Substance: ZOPICLONE
     Route: 065
  108. ZOPICLONE [Suspect]
     Active Substance: ZOPICLONE
     Route: 065
  109. ZOPICLONE [Suspect]
     Active Substance: ZOPICLONE
     Route: 065
  110. ZOPICLONE [Suspect]
     Active Substance: ZOPICLONE
     Route: 065
  111. ZOPICLONE [Suspect]
     Active Substance: ZOPICLONE
     Route: 065
  112. ZOPICLONE [Suspect]
     Active Substance: ZOPICLONE
     Route: 065
  113. ZOPICLONE [Suspect]
     Active Substance: ZOPICLONE
     Route: 065
  114. ZOPICLONE [Suspect]
     Active Substance: ZOPICLONE
     Route: 065
  115. ZOPICLONE [Suspect]
     Active Substance: ZOPICLONE
     Route: 065
  116. ZOPICLONE [Suspect]
     Active Substance: ZOPICLONE
     Route: 065
  117. ZOPICLONE [Suspect]
     Active Substance: ZOPICLONE
     Route: 065
  118. ZOPICLONE [Suspect]
     Active Substance: ZOPICLONE
     Route: 065
  119. ZOPICLONE [Suspect]
     Active Substance: ZOPICLONE
     Route: 065
  120. ZOPICLONE [Suspect]
     Active Substance: ZOPICLONE
     Route: 065
  121. ZOPICLONE [Suspect]
     Active Substance: ZOPICLONE
     Route: 065
  122. ZOPICLONE [Suspect]
     Active Substance: ZOPICLONE
     Route: 065
  123. ZOPICLONE [Suspect]
     Active Substance: ZOPICLONE
     Route: 065
  124. TRAMADOL HYDROCHLORIDE [Suspect]
     Active Substance: TRAMADOL HYDROCHLORIDE
     Indication: Product used for unknown indication
     Route: 065
  125. TRAMADOL HYDROCHLORIDE [Suspect]
     Active Substance: TRAMADOL HYDROCHLORIDE
     Route: 065
  126. TRIMETHOPRIM [Suspect]
     Active Substance: TRIMETHOPRIM
     Indication: Product used for unknown indication
     Route: 065
  127. VENLAFAXINE HYDROCHLORIDE [Suspect]
     Active Substance: VENLAFAXINE HYDROCHLORIDE
     Indication: Product used for unknown indication
     Route: 065
  128. ESCITALOPRAM [Suspect]
     Active Substance: ESCITALOPRAM OXALATE
     Indication: Product used for unknown indication
     Route: 065
  129. ESCITALOPRAM [Suspect]
     Active Substance: ESCITALOPRAM OXALATE
     Route: 065
  130. ZESTRIL [Suspect]
     Active Substance: LISINOPRIL
     Indication: Product used for unknown indication
     Dosage: 1 DOSAGE FORM, QD
     Route: 048
  131. ZESTRIL [Suspect]
     Active Substance: LISINOPRIL
     Dosage: 1 DOSAGE FORM, QD
     Route: 048
  132. ZESTRIL [Suspect]
     Active Substance: LISINOPRIL
     Route: 065
  133. ZOLMITRIPTAN [Suspect]
     Active Substance: ZOLMITRIPTAN
     Indication: Product used for unknown indication
     Route: 065
  134. FERROUS FUMARATE [Concomitant]
     Active Substance: FERROUS FUMARATE
     Indication: Product used for unknown indication
     Route: 065
  135. CEFUROXIME [Concomitant]
     Active Substance: CEFUROXIME
     Indication: Product used for unknown indication
     Route: 065
  136. CEPHALEXIN [Concomitant]
     Active Substance: CEPHALEXIN
     Indication: Product used for unknown indication
     Route: 065
  137. DANAZOL [Concomitant]
     Active Substance: DANAZOL
     Indication: Product used for unknown indication
     Route: 065
  138. CYMBALTA [Concomitant]
     Active Substance: DULOXETINE HYDROCHLORIDE
     Indication: Product used for unknown indication
     Route: 065
  139. FLUOXETINE [Concomitant]
     Active Substance: FLUOXETINE HYDROCHLORIDE
     Indication: Product used for unknown indication
     Route: 065
  140. FLUTICASONE [Concomitant]
     Active Substance: FLUTICASONE
     Indication: Product used for unknown indication
     Route: 065
  141. POLYETHYLENE GLYCOL 3350 [Concomitant]
     Active Substance: POLYETHYLENE GLYCOL 3350
     Indication: Product used for unknown indication
     Route: 065
  142. MORPHINE SULFATE [Concomitant]
     Active Substance: MORPHINE SULFATE
     Indication: Product used for unknown indication
     Route: 065
  143. METOCLOPRAMIDE [Concomitant]
     Active Substance: METOCLOPRAMIDE
     Indication: Product used for unknown indication
     Route: 065
  144. NITROFURANTOIN [Concomitant]
     Active Substance: NITROFURANTOIN
     Indication: Product used for unknown indication
     Route: 065
  145. METRONIDAZOLE [Concomitant]
     Active Substance: METRONIDAZOLE
     Indication: Product used for unknown indication
     Route: 065
  146. NAPROXEN [Concomitant]
     Active Substance: NAPROXEN
     Indication: Product used for unknown indication
     Route: 065
  147. PANTOPRAZOLE SODIUM [Concomitant]
     Active Substance: PANTOPRAZOLE SODIUM
     Indication: Product used for unknown indication
     Route: 065
  148. SULFAMETHOXAZOLE AND TRIMETHOPRIM [Concomitant]
     Active Substance: SULFAMETHOXAZOLE\TRIMETHOPRIM
     Indication: Product used for unknown indication
     Route: 065
  149. FROVATRIPTAN [Concomitant]
     Active Substance: FROVATRIPTAN
     Indication: Product used for unknown indication
     Route: 065
  150. OSELTAMIVIR [Concomitant]
     Active Substance: OSELTAMIVIR
     Indication: Product used for unknown indication
     Route: 065

REACTIONS (9)
  - Angioedema [Unknown]
  - Dysphonia [Unknown]
  - Headache [Unknown]
  - Hypersensitivity [Unknown]
  - Swelling face [Unknown]
  - Swollen tongue [Unknown]
  - Drug ineffective for unapproved indication [Unknown]
  - Drug intolerance [Unknown]
  - Off label use [Unknown]
